FAERS Safety Report 9784263 (Version 2)
Quarter: 2014Q1

REPORT INFORMATION
  Report Type: Spontaneous
  Country: US (occurrence: US)
  Receive Date: 20131226
  Receipt Date: 20140114
  Transmission Date: 20141002
  Serious: No
  Sender: FDA-Public Use
  Company Number: US-BIOGENIDEC-2013BI121860

PATIENT
  Age: 40 Year
  Sex: Female

DRUGS (5)
  1. TECFIDERA [Suspect]
     Indication: PRODUCT USED FOR UNKNOWN INDICATION
     Route: 048
  2. TECFIDERA [Suspect]
     Indication: PRODUCT USED FOR UNKNOWN INDICATION
     Route: 048
  3. CHIA SEED [Concomitant]
  4. ZOVIA [Concomitant]
  5. FLAX SEED [Concomitant]

REACTIONS (3)
  - Multiple allergies [Unknown]
  - Oropharyngeal pain [Unknown]
  - Flushing [Unknown]
